FAERS Safety Report 7063792-1 (Version None)
Quarter: 2010Q4

REPORT INFORMATION
  Report Type: 
  Country: None (occurrence: None)
  Receive Date: 20101026
  Receipt Date: 20101018
  Transmission Date: 20110411
  Serious: Yes (Other)
  Sender: FDA-Public Use
  Company Number: US-ABBOTT-10P-163-0679273-00

PATIENT
  Sex: Male
  Weight: 78.088 kg

DRUGS (5)
  1. SIMCOR [Suspect]
     Indication: BLOOD TRIGLYCERIDES INCREASED
     Dosage: 1000/20 AT BEDTIME
     Dates: start: 20080101
  2. HYDROCODONE [Concomitant]
     Indication: PAIN
  3. COQ10 [Concomitant]
     Indication: PRODUCT USED FOR UNKNOWN INDICATION
  4. FLEXERIL [Concomitant]
     Indication: PRODUCT USED FOR UNKNOWN INDICATION
  5. ASPIRIN [Concomitant]
     Indication: PRODUCT USED FOR UNKNOWN INDICATION

REACTIONS (1)
  - RENAL CANCER [None]
